FAERS Safety Report 9525385 (Version 1)
Quarter: 2013Q3

REPORT INFORMATION
  Report Type: Spontaneous
  Country: US (occurrence: None)
  Receive Date: 20130912
  Receipt Date: 20130912
  Transmission Date: 20140515
  Serious: Yes (Hospitalization)
  Sender: FDA-Public Use
  Company Number: USA/USA/13/0034475

PATIENT
  Age: 75 Year
  Sex: Female

DRUGS (11)
  1. SIMVASTATIN [Suspect]
     Indication: PRODUCT USED FOR UNKNOWN INDICATION
  2. AMLODIPINE BESYLATE [Suspect]
     Indication: PRODUCT USED FOR UNKNOWN INDICATION
  3. CLOPIDOGREL BISULFATE [Suspect]
     Indication: PRODUCT USED FOR UNKNOWN INDICATION
  4. HYDROCHLOROTHIAZIDE [Suspect]
     Indication: PRODUCT USED FOR UNKNOWN INDICATION
     Dosage: UNKNOWN, AS REQUIRED
  5. CARVEDILOL (CARVEDILOL) [Concomitant]
  6. FAMOTIDINE (FAMOTIDINE) [Concomitant]
  7. INSULIN NPH (INSULIN ISOPHANE BOVINE) [Concomitant]
  8. ISOSORBIDE DINITRATE-HYDRALAZINE (BIDIL) [Concomitant]
  9. FUROSEMIDE (FUROSEMIDE) [Concomitant]
  10. POTASSIUM CHLORIDE (POTASSIUM CHLORIDE) [Concomitant]
  11. DIPHENHYDRAMINE [Concomitant]

REACTIONS (6)
  - Drug interaction [None]
  - Swelling face [None]
  - Lip swelling [None]
  - Swollen tongue [None]
  - Disease recurrence [None]
  - Blood glucose increased [None]
